FAERS Safety Report 7440846-9 (Version None)
Quarter: 2011Q2

REPORT INFORMATION
  Report Type: 
  Country: None (occurrence: None)
  Receive Date: 20110427
  Receipt Date: 20110419
  Transmission Date: 20111010
  Serious: Yes (Hospitalization)
  Sender: FDA-Public Use
  Company Number: IE-PFIZER INC-2011085311

PATIENT
  Age: 75 Year
  Sex: Male

DRUGS (1)
  1. ZYVOX [Suspect]
     Indication: STAPHYLOCOCCAL INFECTION
     Dosage: UNK

REACTIONS (3)
  - WEIGHT DECREASED [None]
  - NAUSEA [None]
  - UPPER GASTROINTESTINAL HAEMORRHAGE [None]
